FAERS Safety Report 17533156 (Version 2)
Quarter: 2020Q3

REPORT INFORMATION
  Report Type: Spontaneous
  Country: US (occurrence: US)
  Receive Date: 20200312
  Receipt Date: 20200826
  Transmission Date: 20201102
  Serious: Yes (Other)
  Sender: FDA-Public Use
  Company Number: US-BAUSCH-BL-2020-007799

PATIENT
  Age: 76 Year
  Sex: Female
  Weight: 69.01 kg

DRUGS (5)
  1. MESTINON [Suspect]
     Active Substance: PYRIDOSTIGMINE BROMIDE
     Dosage: HALF TABLET OF 60 MG IN BREAKFAST, ONE TABLET OF 60 MG IN LUNCH AND ONE TABLET OF 60 MG AT DINNER
     Route: 065
     Dates: start: 20191127
  2. NORTHERA [Suspect]
     Active Substance: DROXIDOPA
     Indication: AUTONOMIC NEUROPATHY
     Route: 048
     Dates: start: 20191006
  3. MESTINON [Suspect]
     Active Substance: PYRIDOSTIGMINE BROMIDE
     Indication: PRODUCT USED FOR UNKNOWN INDICATION
     Dosage: HALF TABLET OF 60 MG
     Route: 065
     Dates: start: 20190926, end: 2019
  4. MESTINON [Suspect]
     Active Substance: PYRIDOSTIGMINE BROMIDE
     Dosage: DECREASED TO HALF A TABLET OF 60 MG THREE TIMES A DAY
     Route: 065
     Dates: start: 20200403, end: 2020
  5. MESTINON [Suspect]
     Active Substance: PYRIDOSTIGMINE BROMIDE
     Dosage: INCREASED TO ONE HALF TABLET IN THE BREAKFAST AND LUNCH AND ONE FULL TABLET OF 60 MG AT DINNER
     Route: 065
     Dates: start: 20200626

REACTIONS (1)
  - Cold sweat [Recovered/Resolved]

NARRATIVE: CASE EVENT DATE: 20200212
